FAERS Safety Report 7944553-5 (Version None)
Quarter: 2011Q4

REPORT INFORMATION
  Report Type: 
  Country: None (occurrence: None)
  Receive Date: 20111114
  Receipt Date: 20110913
  Transmission Date: 20120403
  Serious: No
  Sender: FDA-Public Use
  Company Number: 1000023815

PATIENT
  Age: 52 Year
  Sex: Female

DRUGS (9)
  1. LOPRESSOR (METOPROLOL TARTRATE) (TABLETS) (METOPROLOL TARTRATE) [Concomitant]
  2. ZANAFLEX (TIZANIDINE HYDROCHLORIDE) (TABLETS) (TIZANIDINE HYDROCHLORID [Concomitant]
  3. PERCODAN (ASPIRIN AND OXYCODONE) (ASPIRIN AND OXYCODONE) [Concomitant]
  4. SAVELLA [Suspect]
     Indication: FIBROMYALGIA
     Dosage: SEE IMAGE
     Route: 048
     Dates: start: 20110609, end: 20110610
  5. SAVELLA [Suspect]
     Indication: FIBROMYALGIA
     Dosage: SEE IMAGE
     Route: 048
     Dates: start: 20110611, end: 20110614
  6. SAVELLA [Suspect]
     Indication: FIBROMYALGIA
     Dosage: SEE IMAGE
     Route: 048
     Dates: start: 20110608, end: 20110608
  7. SAVELLA [Suspect]
     Indication: FIBROMYALGIA
     Dosage: SEE IMAGE
     Route: 048
     Dates: start: 20110615
  8. PROZAC (FLUOXETINE HYDROCHLORIDE) (TABLETS) (FLUOXETINE HYDROCHLORIDE) [Concomitant]
  9. TOPAMAX (TOPIRAMATE) (TOPIRAMATE) [Concomitant]

REACTIONS (3)
  - NAUSEA [None]
  - HEADACHE [None]
  - PRURITUS [None]
